FAERS Safety Report 19475306 (Version 2)
Quarter: 2021Q3

REPORT INFORMATION
  Report Type: Spontaneous
  Country: US (occurrence: US)
  Receive Date: 20210630
  Receipt Date: 20210709
  Transmission Date: 20211014
  Serious: Yes (Hospitalization)
  Sender: FDA-Public Use
  Company Number: US-COHERUS BIOSCIENCES, INC-2021-COH-US003309

PATIENT

DRUGS (25)
  1. CYTOXAN [Concomitant]
     Active Substance: CYCLOPHOSPHAMIDE
     Dosage: UNK
     Dates: start: 20210402, end: 20210402
  2. CYTOXAN [Concomitant]
     Active Substance: CYCLOPHOSPHAMIDE
     Dosage: UNK
     Dates: start: 20210401, end: 20210401
  3. TAXOTERE [Concomitant]
     Active Substance: DOCETAXEL
     Dosage: UNK
     Dates: start: 20210421, end: 20210421
  4. DECADRON [Concomitant]
     Active Substance: DEXAMETHASONE
     Dosage: 4 MG, SINGLE
     Dates: start: 20210402, end: 20210402
  5. DECADRON [Concomitant]
     Active Substance: DEXAMETHASONE
     Dosage: 10 MG, SINGLE
     Dates: start: 20210421, end: 20210421
  6. DECADRON [Concomitant]
     Active Substance: DEXAMETHASONE
     Dosage: 10 MG, SINGLE
     Dates: start: 20210401, end: 20210401
  7. DECADRON [Concomitant]
     Active Substance: DEXAMETHASONE
     Dosage: 4 MG, SINGLE
     Dates: start: 20210603, end: 20210603
  8. UDENYCA [Suspect]
     Active Substance: PEGFILGRASTIM-CBQV
     Dosage: 0.3 ML, SINGLE
     Route: 058
     Dates: start: 20210513, end: 20210513
  9. TAXOTERE [Concomitant]
     Active Substance: DOCETAXEL
     Dosage: UNK
     Dates: start: 20210512, end: 20210512
  10. TAXOTERE [Concomitant]
     Active Substance: DOCETAXEL
     Dosage: UNK
     Dates: start: 20210602, end: 20210602
  11. DECADRON [Concomitant]
     Active Substance: DEXAMETHASONE
     Dosage: 4 MG, SINGLE
     Dates: start: 20210531, end: 20210531
  12. DECADRON [Concomitant]
     Active Substance: DEXAMETHASONE
     Dosage: 4 MG, SINGLE
     Dates: start: 20210422, end: 20210422
  13. DECADRON [Concomitant]
     Active Substance: DEXAMETHASONE
     Dosage: 10 MG, SINGLE
     Dates: start: 20210512, end: 20210512
  14. DECADRON [Concomitant]
     Active Substance: DEXAMETHASONE
     Dosage: 4 MG, SINGLE
     Dates: start: 20210513, end: 20210513
  15. DECADRON [Concomitant]
     Active Substance: DEXAMETHASONE
     Dosage: UNK
  16. CYTOXAN [Concomitant]
     Active Substance: CYCLOPHOSPHAMIDE
     Dosage: UNK
     Dates: start: 20210421, end: 20210421
  17. CYTOXAN [Concomitant]
     Active Substance: CYCLOPHOSPHAMIDE
     Dosage: UNK
     Dates: start: 20210512, end: 20210512
  18. TAXOTERE [Concomitant]
     Active Substance: DOCETAXEL
     Dosage: UNK
     Dates: start: 20210401, end: 20210401
  19. DECADRON [Concomitant]
     Active Substance: DEXAMETHASONE
     Dosage: 4 MG, SINGLE
     Dates: start: 20210420, end: 20210420
  20. DECADRON [Concomitant]
     Active Substance: DEXAMETHASONE
     Dosage: 10 MG, SINGLE
     Dates: start: 20210602, end: 20210602
  21. ZARZIO [Concomitant]
     Active Substance: FILGRASTIM
     Dosage: 1 INJECTION
     Dates: start: 20210608, end: 20210608
  22. ZARZIO [Concomitant]
     Active Substance: FILGRASTIM
     Dosage: 1 INJECTION
     Dates: start: 20210609, end: 20210609
  23. UDENYCA [Suspect]
     Active Substance: PEGFILGRASTIM-CBQV
     Indication: INFECTION PROPHYLAXIS
     Dosage: 6 MG/0.6 ML
     Route: 058
     Dates: start: 20210402, end: 20210402
  24. DECADRON [Concomitant]
     Active Substance: DEXAMETHASONE
     Dosage: 4 MG, SINGLE
     Dates: start: 20210511, end: 20210511
  25. DECADRON [Concomitant]
     Active Substance: DEXAMETHASONE
     Dosage: 4 MG, SINGLE
     Dates: start: 20210601, end: 20210601

REACTIONS (10)
  - Diverticulitis intestinal perforated [Recovered/Resolved with Sequelae]
  - Pyrexia [Recovered/Resolved]
  - Confusional state [Unknown]
  - Ulcer [Recovered/Resolved]
  - Incorrect dose administered [Unknown]
  - Accidental overdose [Recovered/Resolved]
  - Bone pain [Recovered/Resolved]
  - Arrhythmia [Recovered/Resolved]
  - Neutrophil count decreased [Recovered/Resolved]
  - Insomnia [Recovered/Resolved]

NARRATIVE: CASE EVENT DATE: 2021
